FAERS Safety Report 9190544 (Version 2)
Quarter: 2013Q2

REPORT INFORMATION
  Report Type: Spontaneous
  Country: US (occurrence: US)
  Receive Date: 20130326
  Receipt Date: 20130411
  Transmission Date: 20140414
  Serious: No
  Sender: FDA-Public Use
  Company Number: US-ASTRAZENECA-2013SE16507

PATIENT
  Age: 55 Year
  Sex: Female

DRUGS (3)
  1. FASLODEX [Suspect]
     Indication: BREAST CANCER METASTATIC
     Dosage: UNKNOWN DOSE,  MONTHLY
     Route: 030
  2. HERCEPTIN [Concomitant]
  3. TYKERB [Concomitant]

REACTIONS (3)
  - Cough [Recovered/Resolved]
  - Nervousness [Unknown]
  - Nausea [Unknown]
